FAERS Safety Report 8049034-9 (Version None)
Quarter: 2011Q4

REPORT INFORMATION
  Report Type: 
  Country: None (occurrence: None)
  Receive Date: 20111209
  Receipt Date: 20110913
  Transmission Date: 20120403
  Serious: No
  Sender: FDA-Public Use
  Company Number: 2011SP043275

PATIENT
  Age: 67 Year
  Sex: 0

DRUGS (8)
  1. CLIMEPIRIDE [Concomitant]
  2. PEG-INTRON [Suspect]
     Indication: PRODUCT USED FOR UNKNOWN INDICATION
  3. RIBAVIRIN [Suspect]
     Indication: PRODUCT USED FOR UNKNOWN INDICATION
  4. METOPROLOL TARTRATE [Concomitant]
  5. HYDROCHLOROTHIAZIDE [Concomitant]
  6. METOPROLOL [Concomitant]
  7. VICTRELIS [Suspect]
     Indication: HEPATITIS C
  8. METFORMIN HCL [Concomitant]

REACTIONS (1)
  - THROMBOCYTOSIS [None]
